FAERS Safety Report 15469129 (Version 1)
Quarter: 2018Q4

REPORT INFORMATION
  Report Type: Spontaneous
  Country: DE (occurrence: DE)
  Receive Date: 20181005
  Receipt Date: 20181005
  Transmission Date: 20190205
  Serious: Yes (Other)
  Sender: FDA-Public Use
  Company Number: DE-GLAXOSMITHKLINE-DE2018174998

PATIENT
  Age: 32 Year
  Sex: Female

DRUGS (10)
  1. MEROPENEM. [Suspect]
     Active Substance: MEROPENEM
     Dosage: UNK
     Route: 042
  2. FENOTEROL [Concomitant]
     Active Substance: FENOTEROL
     Indication: TOCOLYSIS
     Dosage: UNK (12 ML/H)
     Route: 042
  3. BETAMETHASONE. [Concomitant]
     Active Substance: BETAMETHASONE
     Indication: MATERNAL THERAPY TO ENHANCE FOETAL LUNG MATURITY
     Dosage: UNK
     Route: 030
  4. FENOTEROL [Concomitant]
     Active Substance: FENOTEROL
     Indication: PRODUCT USED FOR UNKNOWN INDICATION
     Dosage: UNK (36 ML/H, MORE CONTRACTIONS IN SPITE OF  INCREASING DOSAGE)
     Route: 042
  5. CEFUROXIME. [Suspect]
     Active Substance: CEFUROXIME
     Indication: EVIDENCE BASED TREATMENT
  6. CEFUROXIME. [Suspect]
     Active Substance: CEFUROXIME
     Indication: ANTIBIOTIC THERAPY
  7. MEROPENEM. [Suspect]
     Active Substance: MEROPENEM
     Indication: ACINETOBACTER INFECTION
     Dosage: 500 MG, 3X/DAY
     Route: 042
  8. MEROPENEM. [Suspect]
     Active Substance: MEROPENEM
     Dosage: ESCALATED TO 1000 MG, 3X/DAY
     Route: 042
  9. CEFUROXIME. [Suspect]
     Active Substance: CEFUROXIME
     Indication: VAGINAL INFECTION
     Dosage: UNK
     Route: 042
  10. DEQUALINIUM CHLORIDE [Suspect]
     Active Substance: DEQUALINIUM CHLORIDE
     Indication: UTERINE CONTRACTIONS DURING PREGNANCY
     Dosage: 10 MG, 1X/DAY, (LOCAL THERAPY, SUPPOSITORIES)
     Route: 067

REACTIONS (3)
  - Drug resistance [Recovering/Resolving]
  - Drug ineffective [Recovering/Resolving]
  - Exposure during pregnancy [Unknown]
